FAERS Safety Report 16206031 (Version 1)
Quarter: 2019Q2

REPORT INFORMATION
  Report Type: Spontaneous
  Country: JP (occurrence: JP)
  Receive Date: 20190417
  Receipt Date: 20190417
  Transmission Date: 20190711
  Serious: Yes (Death, Hospitalization)
  Sender: FDA-Public Use
  Company Number: JP-ACTELION-A-CH2019-189197

PATIENT
  Age: 73 Year
  Sex: Female

DRUGS (7)
  1. OXYGEN. [Concomitant]
     Active Substance: OXYGEN
  2. BERAPROST SODIUM [Concomitant]
     Active Substance: BERAPROST SODIUM
  3. SILDENAFIL. [Concomitant]
     Active Substance: SILDENAFIL
  4. TRACLEER [Suspect]
     Active Substance: BOSENTAN
     Indication: PULMONARY HYPERTENSION
     Route: 048
  5. PREDNISOLONE. [Concomitant]
     Active Substance: PREDNISOLONE
     Dosage: 60 MG, QD
  6. PREDNISOLONE. [Concomitant]
     Active Substance: PREDNISOLONE
     Dosage: 6 MG, QD
  7. TADALAFIL. [Concomitant]
     Active Substance: TADALAFIL

REACTIONS (11)
  - Pleural effusion [Recovering/Resolving]
  - Mycobacterial infection [Unknown]
  - Cardiac failure congestive [Recovering/Resolving]
  - Dyspnoea exertional [Unknown]
  - Catheterisation cardiac [Unknown]
  - Lung infection [Fatal]
  - Oedema peripheral [Recovering/Resolving]
  - Concomitant disease aggravated [Unknown]
  - Haemorrhage [Fatal]
  - Cough [Unknown]
  - Haemoptysis [Unknown]
